FAERS Safety Report 6162139-2 (Version None)
Quarter: 2009Q2

REPORT INFORMATION
  Report Type: 
  Country: None (occurrence: None)
  Receive Date: 20090421
  Receipt Date: 20090408
  Transmission Date: 20091009
  Serious: Yes (Other)
  Sender: FDA-Public Use
  Company Number: US-PFIZER INC-2004108936

PATIENT
  Sex: Female
  Weight: 54.422 kg

DRUGS (6)
  1. PROVERA [Suspect]
     Indication: HORMONE REPLACEMENT THERAPY
     Route: 048
     Dates: start: 19920101, end: 19980101
  2. PROVERA [Suspect]
     Indication: MENOPAUSAL SYMPTOMS
  3. ESTROGENS CONJUGATED [Suspect]
     Indication: HORMONE REPLACEMENT THERAPY
     Route: 048
     Dates: start: 19920101, end: 19980101
  4. ESTROGENS CONJUGATED [Suspect]
     Indication: MENOPAUSAL SYMPTOMS
  5. SYNTHROID [Concomitant]
     Indication: HYPOTHYROIDISM
     Dosage: UNK
     Dates: start: 19600101
  6. OXYBUTYNIN [Concomitant]
     Indication: MICTURITION URGENCY
     Dosage: UNK
     Dates: start: 19900101

REACTIONS (1)
  - BREAST CANCER FEMALE [None]
